FAERS Safety Report 8462131-9 (Version None)
Quarter: 2012Q2

REPORT INFORMATION
  Report Type: 
  Country: None (occurrence: None)
  Receive Date: 20120625
  Receipt Date: 20120618
  Transmission Date: 20120825
  Serious: Yes (Other)
  Sender: FDA-Public Use
  Company Number: US-JNJFOC-20120517901

PATIENT
  Sex: Female
  Weight: 65.77 kg

DRUGS (2)
  1. TRUVADA [Concomitant]
     Route: 065
  2. INTELENCE [Suspect]
     Indication: HIV INFECTION
     Route: 048
     Dates: end: 20120603

REACTIONS (5)
  - STRESS [None]
  - WEIGHT INCREASED [None]
  - ABNORMAL LOSS OF WEIGHT [None]
  - ADVERSE EVENT [None]
  - DRUG DOSE OMISSION [None]
